FAERS Safety Report 6834580-3 (Version None)
Quarter: 2010Q3

REPORT INFORMATION
  Report Type: 
  Country: None (occurrence: None)
  Receive Date: 20100712
  Receipt Date: 20070416
  Transmission Date: 20110219
  Serious: No
  Sender: FDA-Public Use
  Company Number: US-PFIZER INC-2007032704

PATIENT
  Sex: Female
  Weight: 70.76 kg

DRUGS (7)
  1. CHANTIX [Suspect]
     Indication: SMOKING CESSATION THERAPY
     Dates: start: 20070331
  2. ACTONEL [Concomitant]
  3. ATENOLOL [Concomitant]
  4. DRUG, UNSPECIFIED [Concomitant]
     Indication: THYROID DISORDER
  5. LIPITOR [Concomitant]
  6. CELEBREX [Concomitant]
  7. ACETYLSALICYLIC ACID [Concomitant]

REACTIONS (4)
  - FATIGUE [None]
  - FEELING ABNORMAL [None]
  - INCORRECT DOSE ADMINISTERED [None]
  - NAUSEA [None]
